FAERS Safety Report 9744056 (Version 3)
Quarter: 2014Q1

REPORT INFORMATION
  Report Type: Spontaneous
  Country: US (occurrence: US)
  Receive Date: 20131210
  Receipt Date: 20140221
  Transmission Date: 20141002
  Serious: Yes (Other)
  Sender: FDA-Public Use
  Company Number: US-BAYER-2013-149294

PATIENT
  Age: 31 Year
  Sex: Female
  Weight: 70.3 kg

DRUGS (3)
  1. MIRENA [Suspect]
     Indication: CONTRACEPTION
     Dosage: 20 MCG/24HR, CONT
     Route: 015
     Dates: start: 20120914, end: 20121207
  2. FERREX FORTE [Concomitant]
     Dosage: TWICE DAILY
     Route: 048
  3. ZOFRAN [Concomitant]
     Dosage: 8 MG, EVERY 8 HOURS
     Route: 048

REACTIONS (5)
  - Uterine perforation [None]
  - Injury [None]
  - Pain [None]
  - Emotional distress [None]
  - Device misuse [None]
